FAERS Safety Report 11590074 (Version 1)
Quarter: 2015Q4

REPORT INFORMATION
  Report Type: Spontaneous
  Country: GB (occurrence: GB)
  Receive Date: 20151002
  Receipt Date: 20151002
  Transmission Date: 20160304
  Serious: No
  Sender: FDA-Public Use
  Company Number: GB-SUNOVION-2015SUN000391

PATIENT

DRUGS (5)
  1. RISPERIDONE. [Concomitant]
     Active Substance: RISPERIDONE
  2. LATUDA [Suspect]
     Active Substance: LURASIDONE HYDROCHLORIDE
     Indication: PRODUCT USED FOR UNKNOWN INDICATION
  3. QUETIAPINE [Concomitant]
     Active Substance: QUETIAPINE
  4. AMISULPRIDE [Concomitant]
     Active Substance: AMISULPRIDE
  5. LITHIUM. [Concomitant]
     Active Substance: LITHIUM

REACTIONS (1)
  - Renal function test abnormal [Unknown]
